FAERS Safety Report 24397526 (Version 1)
Quarter: 2024Q4

REPORT INFORMATION
  Report Type: Spontaneous
  Country: GB (occurrence: GB)
  Receive Date: 20241004
  Receipt Date: 20241004
  Transmission Date: 20250115
  Serious: Yes (Other)
  Sender: INCYTE
  Company Number: GB-002147023-NVSC2024GB194685

PATIENT

DRUGS (1)
  1. RUXOLITINIB [Suspect]
     Active Substance: RUXOLITINIB
     Indication: Myelofibrosis
     Dosage: UNK (FOR ABOUT YEARS)
     Route: 065

REACTIONS (1)
  - Squamous cell carcinoma [Unknown]
